FAERS Safety Report 5226739-6 (Version None)
Quarter: 2007Q1

REPORT INFORMATION
  Report Type: 
  Country: None (occurrence: None)
  Receive Date: 20070201
  Receipt Date: 20070126
  Transmission Date: 20070707
  Serious: Yes (Disabling)
  Sender: FDA-Public Use
  Company Number: US-MERCK-0611USA06123

PATIENT
  Age: 61 Year
  Sex: Male

DRUGS (1)
  1. VYTORIN [Suspect]
     Indication: BLOOD CHOLESTEROL
     Route: 048
     Dates: start: 20051201, end: 20061105

REACTIONS (9)
  - ABDOMINAL PAIN [None]
  - BLOOD ALKALINE PHOSPHATASE INCREASED [None]
  - COELIAC DISEASE [None]
  - EROSIVE OESOPHAGITIS [None]
  - GASTRITIS [None]
  - HYPOTENSION [None]
  - MALABSORPTION [None]
  - NAUSEA [None]
  - VOMITING [None]
